FAERS Safety Report 14671968 (Version 2)
Quarter: 2018Q2

REPORT INFORMATION
  Report Type: Report from Study
  Country: None (occurrence: TW)
  Receive Date: 20180323
  Receipt Date: 20180418
  Transmission Date: 20180711
  Serious: Yes (Other)
  Sender: FDA-Public Use
  Company Number: TW-ABBVIE-18K-153-2296700-00

PATIENT
  Age: 65 Year
  Sex: Male
  Weight: 53 kg

DRUGS (5)
  1. MTX [Concomitant]
     Active Substance: METHOTREXATE SODIUM
     Indication: RHEUMATOID ARTHRITIS
     Dosage: 6 STRENGTH
     Route: 048
     Dates: start: 20130515
  2. HUMIRA [Suspect]
     Active Substance: ADALIMUMAB
     Indication: RHEUMATOID ARTHRITIS
     Route: 058
     Dates: start: 20180307, end: 20180321
  3. SULFASALAZINE. [Concomitant]
     Active Substance: SULFASALAZINE
     Indication: RHEUMATOID ARTHRITIS
     Dosage: 2 STRENGTH
     Dates: start: 20140611
  4. HYDROXYCHLOROQUINE [Concomitant]
     Active Substance: HYDROXYCHLOROQUINE
     Indication: RHEUMATOID ARTHRITIS
     Dosage: 1 STRENGTH
     Route: 048
     Dates: start: 20100406
  5. PREDNISOLONE. [Concomitant]
     Active Substance: PREDNISOLONE
     Indication: PRODUCT USED FOR UNKNOWN INDICATION
     Dosage: 1 STRENGTH
     Route: 048
     Dates: start: 20100817

REACTIONS (11)
  - Fungal infection [Not Recovered/Not Resolved]
  - Lymphadenopathy mediastinal [Not Recovered/Not Resolved]
  - Chest X-ray abnormal [Unknown]
  - Hepatic cyst [Unknown]
  - Aortic disorder [Unknown]
  - Pneumonia [Unknown]
  - Hepatic mass [Unknown]
  - Tuberculosis [Not Recovered/Not Resolved]
  - Spinal osteoarthritis [Not Recovered/Not Resolved]
  - Emphysema [Unknown]
  - Lung consolidation [Unknown]

NARRATIVE: CASE EVENT DATE: 2018
